FAERS Safety Report 7276375-5 (Version None)
Quarter: 2011Q1

REPORT INFORMATION
  Report Type: 
  Country: None (occurrence: None)
  Receive Date: 20110204
  Receipt Date: 20110131
  Transmission Date: 20110831
  Serious: Yes (Death, Life-Threatening, Hospitalization, Other)
  Sender: FDA-Public Use
  Company Number: FI-PFIZER INC-FI-WYE-H08874909

PATIENT
  Age: 54 Year
  Sex: Male
  Weight: 49 kg

DRUGS (5)
  1. CYCLOSPORINE [Suspect]
     Indication: PROPHYLAXIS AGAINST TRANSPLANT REJECTION
     Dosage: NOT PROVIDED
     Route: 065
     Dates: start: 20080628, end: 20100908
  2. ACETYLSALICYLIC ACID [Concomitant]
     Indication: CARDIOVASCULAR DISORDER
     Dosage: UNK
     Route: 065
     Dates: start: 20080607
  3. MEDROL [Suspect]
     Dosage: NOT PROVIDED
     Route: 065
     Dates: start: 20080628
  4. MYCOPHENOLATE MOFETIL [Suspect]
     Indication: PROPHYLAXIS AGAINST TRANSPLANT REJECTION
     Dosage: UNK
     Route: 065
     Dates: start: 20080628, end: 20091127
  5. BISOPROLOL [Concomitant]
     Indication: BLOOD PRESSURE
     Dosage: UNK
     Route: 065
     Dates: start: 20080829

REACTIONS (1)
  - HEPATIC NEOPLASM MALIGNANT RECURRENT [None]
